FAERS Safety Report 23506321 (Version 1)
Quarter: 2024Q1

REPORT INFORMATION
  Report Type: Spontaneous
  Country: US (occurrence: US)
  Receive Date: 20240209
  Receipt Date: 20240209
  Transmission Date: 20240410
  Serious: No
  Sender: FDA-Public Use
  Company Number: US-GLENMARK PHARMACEUTICALS-2023GMK084116

PATIENT

DRUGS (2)
  1. ADAPALENE [Suspect]
     Active Substance: ADAPALENE
     Indication: Acne
     Dosage: UNK, QD
     Route: 061
  2. ADAPALENE [Suspect]
     Active Substance: ADAPALENE
     Dosage: UNK, BID
     Route: 061

REACTIONS (2)
  - Inappropriate schedule of product administration [Unknown]
  - Acne [Not Recovered/Not Resolved]
